FAERS Safety Report 5166498-9 (Version None)
Quarter: 2006Q4

REPORT INFORMATION
  Report Type: 
  Country: None (occurrence: None)
  Receive Date: 20061207
  Receipt Date: 20061129
  Transmission Date: 20070319
  Serious: Yes (Hospitalization)
  Sender: FDA-Public Use
  Company Number: FR-SOLVAY-00206003938

PATIENT
  Age: 84 Year
  Sex: Male

DRUGS (5)
  1. PERINDOPRIL ERBUMINE [Suspect]
     Indication: ILL-DEFINED DISORDER
     Dosage: DAILY DOSE: 2 MILLIGRAM(S)
     Route: 048
  2. PREVISCAN [Suspect]
     Indication: ATRIAL FLUTTER
     Dosage: DAILY DOSE: 15 MILLIGRAM(S)
     Route: 048
     Dates: end: 20060924
  3. GLUCOPHAGE [Suspect]
     Indication: ILL-DEFINED DISORDER
     Dosage: DAILY DOSE: 500 MILLIGRAM(S)
     Route: 048
  4. LASIX [Suspect]
     Indication: ILL-DEFINED DISORDER
     Dosage: DAILY DOSE: 40 MILLIGRAM(S)
     Route: 048
  5. AMLOR [Suspect]
     Indication: ILL-DEFINED DISORDER
     Dosage: DAILY DOSE: 5 MILLIGRAM(S)
     Route: 048

REACTIONS (2)
  - FALL [None]
  - SUBDURAL HAEMATOMA [None]
